FAERS Safety Report 26078895 (Version 1)
Quarter: 2025Q4

REPORT INFORMATION
  Report Type: Spontaneous
  Country: US (occurrence: US)
  Receive Date: 20251123
  Receipt Date: 20251123
  Transmission Date: 20260118
  Serious: No
  Sender: GALPHARM INTERNATIONAL
  Company Number: US-PERRIGO-25US002898

PATIENT
  Sex: Female

DRUGS (1)
  1. OPILL [Suspect]
     Active Substance: NORGESTREL
     Indication: Contraception
     Dosage: UNKNOWN, UNKNOWN
     Route: 048
     Dates: start: 20250206

REACTIONS (4)
  - Intermenstrual bleeding [Unknown]
  - Headache [Unknown]
  - Dysmenorrhoea [Unknown]
  - Acne [Unknown]

NARRATIVE: CASE EVENT DATE: 20250201
